FAERS Safety Report 15186485 (Version 2)
Quarter: 2019Q1

REPORT INFORMATION
  Report Type: Report from Study
  Country: US (occurrence: US)
  Receive Date: 20180723
  Receipt Date: 20190130
  Transmission Date: 20190417
  Serious: No
  Sender: FDA-Public Use
  Company Number: US-EXELIXIS-CABO-18012644

PATIENT
  Sex: Male

DRUGS (39)
  1. ATORVASTATIN [Concomitant]
     Active Substance: ATORVASTATIN
     Dosage: UNK
  2. AMLODIPINE [Concomitant]
     Active Substance: AMLODIPINE BESYLATE
     Dosage: UNK
  3. HEPARIN [Concomitant]
     Active Substance: HEPARIN SODIUM
     Dosage: UNK
  4. METFORMIN [Concomitant]
     Active Substance: METFORMIN HYDROCHLORIDE
     Dosage: UNK
  5. ANUSOL HC [Concomitant]
     Active Substance: HYDROCORTISONE
     Dosage: UNK
  6. MILK OF MAGNESIA [Concomitant]
     Active Substance: MAGNESIUM HYDROXIDE
     Dosage: UNK
  7. MAALOX ANTACID [Concomitant]
     Active Substance: ALUMINUM HYDROXIDE\DIMETHICONE\MAGNESIUM HYDROXIDE
     Dosage: UNK
  8. CITALOPRAM [Concomitant]
     Active Substance: CITALOPRAM HYDROBROMIDE
     Dosage: UNK
  9. VENTOLIN [Concomitant]
     Active Substance: ALBUTEROL SULFATE
     Dosage: UNK
  10. MULTIVITAMINS, COMBINATIONS [Concomitant]
     Active Substance: VITAMINS
  11. OMEPRAZOLE. [Concomitant]
     Active Substance: OMEPRAZOLE
     Dosage: UNK
  12. APAP [Concomitant]
     Active Substance: ACETAMINOPHEN
     Dosage: UNK
  13. PREPARATION H NOS [Concomitant]
     Active Substance: COCOA BUTTER\PETROLATUM\PHENYLEPHRINE HYDROCHLORIDE\PHENYLEPHRINE HYDROCHLORIDE OR MINERAL OIL
     Dosage: UNK
  14. TRAZODONE [Concomitant]
     Active Substance: TRAZODONE HYDROCHLORIDE
     Dosage: UNK
  15. LOSARTAN POTASSIUM. [Concomitant]
     Active Substance: LOSARTAN POTASSIUM
     Dosage: UNK
  16. LEVOTHYROXINE. [Concomitant]
     Active Substance: LEVOTHYROXINE
     Dosage: UNK
  17. NITROGLYCERIN. [Concomitant]
     Active Substance: NITROGLYCERIN
     Dosage: UNK
  18. CALAZIME [Concomitant]
     Dosage: UNK
  19. ASA [Concomitant]
     Active Substance: ASPIRIN
     Dosage: UNK
  20. LEVETIRACETAM. [Concomitant]
     Active Substance: LEVETIRACETAM
     Dosage: UNK
  21. WARFARIN [Concomitant]
     Active Substance: WARFARIN
  22. AZELASTINE. [Concomitant]
     Active Substance: AZELASTINE HYDROCHLORIDE
     Dosage: UNK
  23. THE MAGIC BULLET [Concomitant]
     Active Substance: BISACODYL
     Dosage: UNK
  24. CABOMETYX [Suspect]
     Active Substance: CABOZANTINIB S-MALATE
     Dosage: 20 MG, QD
     Route: 048
     Dates: end: 201803
  25. TRAMADOL HCL [Concomitant]
     Active Substance: TRAMADOL HYDROCHLORIDE
     Dosage: UNK
  26. LORAZEPAM. [Concomitant]
     Active Substance: LORAZEPAM
     Dosage: UNK
  27. TOBRADEX [Concomitant]
     Active Substance: DEXAMETHASONE\TOBRAMYCIN
     Dosage: UNK
  28. MELATONIN [Concomitant]
     Active Substance: MELATONIN
     Dosage: UNK
  29. METOPROLOL. [Concomitant]
     Active Substance: METOPROLOL
     Dosage: UNK
  30. MIRALAX [Concomitant]
     Active Substance: POLYETHYLENE GLYCOL 3350
     Dosage: UNK
  31. DOCUSATE SODIUM. [Concomitant]
     Active Substance: DOCUSATE SODIUM
     Dosage: UNK
  32. ONDANSETRAN [Concomitant]
     Active Substance: ONDANSETRON HYDROCHLORIDE
     Dosage: UNK
  33. BACLOFEN. [Concomitant]
     Active Substance: BACLOFEN
     Dosage: UNK
  34. UBIQUINOL [Concomitant]
     Active Substance: UBIQUINOL
     Dosage: UNK
  35. ZINC OXIDE. [Concomitant]
     Active Substance: ZINC OXIDE
     Dosage: UNK
  36. CALCIUM CARBONATE. [Concomitant]
     Active Substance: CALCIUM CARBONATE
     Dosage: UNK
  37. CABOMETYX [Suspect]
     Active Substance: CABOZANTINIB S-MALATE
     Indication: RENAL CANCER
     Dosage: 20 MG, QD
     Route: 048
     Dates: start: 20170830
  38. CABOMETYX [Suspect]
     Active Substance: CABOZANTINIB S-MALATE
     Dosage: 20 MG, QD
     Route: 048
     Dates: start: 201803
  39. PROBIOTIC [Concomitant]
     Active Substance: PROBIOTICS NOS
     Dosage: UNK

REACTIONS (2)
  - Abdominal discomfort [Not Recovered/Not Resolved]
  - Diarrhoea [Not Recovered/Not Resolved]
